FAERS Safety Report 7874563-8 (Version None)
Quarter: 2011Q4

REPORT INFORMATION
  Report Type: 
  Country: None (occurrence: None)
  Receive Date: 20111031
  Receipt Date: 20111025
  Transmission Date: 20120403
  Serious: Yes (Other)
  Sender: FDA-Public Use
  Company Number: US-PFIZER INC-2011238881

PATIENT
  Age: 54 Year
  Sex: Female

DRUGS (8)
  1. ACETAMINOPHEN [Suspect]
     Dosage: UNK
  2. TYLENOL-500 [Concomitant]
     Dosage: 6 TABLETS DAILY
     Route: 048
  3. PROVENTIL GENTLEHALER [Concomitant]
     Indication: WHEEZING
     Dosage: INHALE 2 PUFFS INTO THE LUNGS EVERY 6 HOURS AS NEEDED
  4. ZOCOR [Concomitant]
     Dosage: 20 MG, 1X/DAY
     Route: 048
  5. VENTOLIN [Concomitant]
     Indication: WHEEZING
     Dosage: INHALE 2 PUFFS INTO THE LUNGS EVERY 6 HOURS AS NEEDED
  6. BENADRYL [Concomitant]
     Dosage: 1 TABLET DAILY
     Route: 048
  7. GABAPENTIN [Suspect]
     Dosage: 600 MG, UNK
  8. LEVOXYL [Suspect]
     Dosage: UNK

REACTIONS (4)
  - PHARYNGEAL OEDEMA [None]
  - RASH [None]
  - URTICARIA [None]
  - DRUG HYPERSENSITIVITY [None]
